FAERS Safety Report 6741149-8 (Version None)
Quarter: 2010Q2

REPORT INFORMATION
  Report Type: 
  Country: None (occurrence: None)
  Receive Date: 20100526
  Receipt Date: 20070917
  Transmission Date: 20101027
  Serious: Yes (Death, Life-Threatening, Hospitalization, Disabling, Other)
  Sender: FDA-Public Use
  Company Number: US-BRISTOL-MYERS SQUIBB COMPANY-15111495

PATIENT
  Age: 49 Year
  Sex: Male
  Weight: 80 kg

DRUGS (9)
  1. EFAVIRENZ [Suspect]
     Indication: HIV INFECTION
     Route: 048
     Dates: start: 20051006, end: 20070815
  2. TENOFOVIR [Suspect]
     Indication: HIV INFECTION
     Dosage: TAB
     Route: 048
     Dates: start: 20051006, end: 20070815
  3. LAMIVUDINE [Suspect]
     Indication: HIV INFECTION
     Dosage: TAB
     Route: 048
     Dates: start: 20051006, end: 20070815
  4. NORMISON [Concomitant]
     Dates: start: 20001221
  5. SEPTRIN FORTE [Concomitant]
     Dates: start: 20060912
  6. VALIUM [Concomitant]
     Dates: start: 19990101
  7. ZOLOFT [Concomitant]
     Dates: start: 20020502
  8. VIAGRA [Concomitant]
     Dates: start: 20050630
  9. ACETAMINOPHEN W/ CODEINE [Concomitant]
     Dates: start: 20050902

REACTIONS (4)
  - DEEP VEIN THROMBOSIS [None]
  - DIZZINESS [None]
  - GASTROINTESTINAL CANCER METASTATIC [None]
  - LARYNGEAL CANCER [None]
